FAERS Safety Report 19304967 (Version 1)
Quarter: 2021Q2

REPORT INFORMATION
  Report Type: Spontaneous
  Country: US (occurrence: US)
  Receive Date: 20210526
  Receipt Date: 20210526
  Transmission Date: 20210717
  Serious: Yes (Hospitalization, Other)
  Sender: FDA-Public Use
  Company Number: US-BRISTOL-MYERS SQUIBB COMPANY-BMS-2021-050878

PATIENT
  Age: 69 Year
  Sex: Female

DRUGS (3)
  1. ELIQUIS [Suspect]
     Active Substance: APIXABAN
     Indication: PRODUCT USED FOR UNKNOWN INDICATION
     Route: 065
  2. FABRAZYME [Suspect]
     Active Substance: AGALSIDASE BETA
     Indication: FABRY^S DISEASE
     Dosage: 70 MG AND 55 MG FOR ONCE IN EVERY TWO WEEKS
     Route: 042
     Dates: start: 20170810
  3. FABRAZYME [Suspect]
     Active Substance: AGALSIDASE BETA
     Dosage: 70 MILLIGRAM, Q2WK
     Route: 042
     Dates: start: 20181102

REACTIONS (6)
  - Troponin increased [Recovering/Resolving]
  - Muscle spasms [Unknown]
  - Vein rupture [Not Recovered/Not Resolved]
  - Syncope [Recovered/Resolved]
  - Lichen planus [Not Recovered/Not Resolved]
  - Bradycardia [Not Recovered/Not Resolved]

NARRATIVE: CASE EVENT DATE: 2020
